FAERS Safety Report 7215453-3 (Version None)
Quarter: 2011Q1

REPORT INFORMATION
  Report Type: 
  Country: None (occurrence: None)
  Receive Date: 20110107
  Receipt Date: 20101222
  Transmission Date: 20110831
  Serious: Yes (Congenital Anomaly)
  Sender: FDA-Public Use
  Company Number: A0679413A

PATIENT
  Sex: Female
  Weight: 3.2 kg

DRUGS (2)
  1. PAXIL [Suspect]
     Indication: DEPRESSION
     Dosage: 40MG PER DAY
  2. PAXIL CR [Suspect]
     Indication: DEPRESSION
     Dosage: 25MG PER DAY

REACTIONS (5)
  - PERSISTENT FOETAL CIRCULATION [None]
  - VENTRICULAR SEPTAL DEFECT [None]
  - MULTIPLE CONGENITAL ABNORMALITIES [None]
  - PULMONARY ARTERY STENOSIS CONGENITAL [None]
  - DRUG EXPOSURE DURING PREGNANCY [None]
